FAERS Safety Report 4616910-6 (Version None)
Quarter: 2005Q1

REPORT INFORMATION
  Report Type: 
  Country: None (occurrence: None)
  Receive Date: 20050321
  Receipt Date: 20031113
  Transmission Date: 20050727
  Serious: Yes (Hospitalization)
  Sender: FDA-Public Use
  Company Number: 6718

PATIENT
  Age: 41 Year
  Sex: Female

DRUGS (9)
  1. TAXOL [Suspect]
     Indication: OVARIAN CANCER
     Dosage: 1200 MG TOTAL/220 MG PER_CYCLE
     Dates: start: 20030228, end: 20030228
  2. TAXOL [Suspect]
     Indication: OVARIAN CANCER
     Dosage: 1200 MG TOTAL/220 MG PER_CYCLE
     Dates: start: 20021101, end: 20030228
  3. CARBOPLATIN [Suspect]
     Indication: OVARIAN CANCER
     Dosage: 3000 MG TOTAL/500 MG PER_CYCLE
     Dates: start: 20030228, end: 20030228
  4. CARBOPLATIN [Suspect]
     Indication: OVARIAN CANCER
     Dosage: 3000 MG TOTAL/500 MG PER_CYCLE
     Dates: start: 20021101
  5. DEXAMETHASONE [Concomitant]
  6. TROPISETRON [Concomitant]
  7. DIAZEPAM [Concomitant]
  8. RANITIDINE [Concomitant]
  9. PROMETHAZINE [Concomitant]

REACTIONS (13)
  - AGRANULOCYTOSIS [None]
  - APLASTIC ANAEMIA [None]
  - BLOOD MAGNESIUM INCREASED [None]
  - CHRONIC OBSTRUCTIVE PULMONARY DISEASE [None]
  - CONDITION AGGRAVATED [None]
  - DEPRESSION [None]
  - EPILEPSY [None]
  - GASTROENTERITIS SALMONELLA [None]
  - GASTROOESOPHAGEAL REFLUX DISEASE [None]
  - HYPONATRAEMIA [None]
  - TOOTH DISCOLOURATION [None]
  - UPPER RESPIRATORY TRACT INFECTION [None]
  - VAGINAL CANDIDIASIS [None]
